FAERS Safety Report 15140425 (Version 1)
Quarter: 2018Q3

REPORT INFORMATION
  Report Type: Other
  Country: JP (occurrence: JP)
  Receive Date: 20180713
  Receipt Date: 20180713
  Transmission Date: 20181010
  Serious: Yes (Death)
  Sender: FDA-Public Use
  Company Number: JP-ACTELION-A-CH2018-175214

PATIENT
  Age: 48 Day
  Sex: Male

DRUGS (5)
  1. NITRIC OXIDE. [Concomitant]
     Active Substance: NITRIC OXIDE
     Route: 055
  2. OXYGEN. [Concomitant]
     Active Substance: OXYGEN
     Route: 055
  3. MILRINONE [Concomitant]
     Active Substance: MILRINONE
  4. EPOPROSTENOL SODIUM. [Suspect]
     Active Substance: EPOPROSTENOL SODIUM
     Indication: EBSTEIN^S ANOMALY
     Route: 042
  5. CARPERITIDE [Concomitant]
     Active Substance: CARPERITIDE

REACTIONS (2)
  - Death [Fatal]
  - Therapeutic response decreased [Unknown]
